FAERS Safety Report 4735397-6 (Version None)
Quarter: 2005Q3

REPORT INFORMATION
  Report Type: 
  Country: None (occurrence: None)
  Receive Date: 20050803
  Receipt Date: 20050803
  Transmission Date: 20060218
  Serious: Yes (Other)
  Sender: FDA-Public Use
  Company Number: None

PATIENT
  Age: 54 Year
  Sex: Male

DRUGS (12)
  1. TENOFOVIR [Suspect]
     Indication: HIV INFECTION
     Dosage: 300MG PO QD
     Route: 048
     Dates: start: 20040714
  2. LAMIVUDINE [Suspect]
     Indication: HIV INFECTION
     Dosage: 300MG PO QD
     Route: 048
     Dates: start: 20050617
  3. RITONAVIR [Suspect]
     Indication: HIV INFECTION
     Dosage: 100MG PO QD
     Route: 048
     Dates: start: 20041004
  4. ATAZANAVIR [Suspect]
     Indication: HIV INFECTION
     Dosage: 300MG PO QD
     Route: 048
     Dates: start: 20041004
  5. ASPIRIN [Concomitant]
  6. ATENOLOL [Concomitant]
  7. CALCIUM CARBONATE [Concomitant]
  8. DYAZIDE [Concomitant]
  9. ENALAPRIL [Concomitant]
  10. LEVOTHYROXINE SODIUM [Concomitant]
  11. PERCOCET [Concomitant]
  12. TRIMETHOPRIM-SULFAMETHOXAZOLE [Concomitant]

REACTIONS (4)
  - DIPLOPIA [None]
  - GAIT DISTURBANCE [None]
  - GAZE PALSY [None]
  - TRANSIENT ISCHAEMIC ATTACK [None]
